FAERS Safety Report 8927259 (Version 1)
Quarter: 2012Q4

REPORT INFORMATION
  Report Type: 
  Country: SE (occurrence: SE)
  Receive Date: 20121127
  Receipt Date: 20121127
  Transmission Date: 20130627
  Serious: Yes (Other)
  Sender: FDA-Public Use
  Company Number: SE-JNJFOC-20121110779

PATIENT
  Age: 5 None
  Sex: Male

DRUGS (8)
  1. DARUNAVIR [Suspect]
     Indication: HIV INFECTION
     Route: 048
     Dates: start: 200908
  2. DARUNAVIR [Suspect]
     Indication: HIV INFECTION
     Route: 048
     Dates: start: 201011
  3. RITONAVIR [Suspect]
     Indication: HIV INFECTION
     Route: 065
     Dates: start: 201011
  4. RITONAVIR [Suspect]
     Indication: HIV INFECTION
     Route: 065
     Dates: start: 200908
  5. ABACAVIR [Suspect]
     Indication: HIV INFECTION
     Route: 065
     Dates: start: 200908, end: 201011
  6. ABACAVIR [Suspect]
     Indication: HIV INFECTION
     Route: 065
  7. LAMIVUDINE [Suspect]
     Indication: HIV INFECTION
     Route: 065
  8. LAMIVUDINE [Suspect]
     Indication: HIV INFECTION
     Route: 065
     Dates: start: 2004, end: 201011

REACTIONS (2)
  - CSF protein increased [Unknown]
  - Viral load increased [Recovering/Resolving]
